FAERS Safety Report 8003587-5 (Version None)
Quarter: 2011Q4

REPORT INFORMATION
  Report Type: 
  Country: None (occurrence: None)
  Receive Date: 20111222
  Receipt Date: 20111212
  Transmission Date: 20120403
  Serious: Yes (Death, Disabling, Other)
  Sender: FDA-Public Use
  Company Number: MX-SANOFI-AVENTIS-2011SA081215

PATIENT
  Age: 35 Year
  Sex: Male
  Weight: 42 kg

DRUGS (1)
  1. LANTUS [Suspect]
     Indication: TYPE 2 DIABETES MELLITUS
     Route: 058
     Dates: start: 20080101, end: 20110728

REACTIONS (6)
  - MUSCULAR WEAKNESS [None]
  - DIARRHOEA [None]
  - MYOCARDIAL INFARCTION [None]
  - HYPERGLYCAEMIA [None]
  - WALKING DISABILITY [None]
  - DRUG ADMINISTRATION ERROR [None]
